FAERS Safety Report 11603351 (Version 2)
Quarter: 2015Q4

REPORT INFORMATION
  Report Type: Report from Study
  Country: US (occurrence: US)
  Receive Date: 20151007
  Receipt Date: 20151013
  Transmission Date: 20160304
  Serious: No
  Sender: FDA-Public Use
  Company Number: US-ASTRAZENECA-2015SE81558

PATIENT
  Sex: Female

DRUGS (1)
  1. OLAPARIB [Suspect]
     Active Substance: OLAPARIB
     Indication: OVARIAN CANCER
     Route: 048

REACTIONS (5)
  - Dysgeusia [Unknown]
  - Abdominal pain upper [Not Recovered/Not Resolved]
  - Cough [Not Recovered/Not Resolved]
  - Productive cough [Unknown]
  - Nasal congestion [Not Recovered/Not Resolved]
